FAERS Safety Report 5326435-0 (Version None)
Quarter: 2007Q2

REPORT INFORMATION
  Report Type: 
  Country: None (occurrence: None)
  Receive Date: 20070516
  Receipt Date: 20070511
  Transmission Date: 20071010
  Serious: Yes (Other)
  Sender: FDA-Public Use
  Company Number: US-MERCK-0704USA00235

PATIENT
  Age: 66 Year
  Sex: Male
  Weight: 80 kg

DRUGS (2)
  1. ZETIA [Suspect]
     Indication: HYPERCHOLESTEROLAEMIA
     Route: 048
     Dates: start: 20070325, end: 20070328
  2. [THERAPY UNSPECIFIED] [Concomitant]
     Indication: HYPERTENSION
     Route: 065

REACTIONS (2)
  - FACE OEDEMA [None]
  - OEDEMA PERIPHERAL [None]
